FAERS Safety Report 19988075 (Version 6)
Quarter: 2023Q1

REPORT INFORMATION
  Report Type: Report from Study
  Country: US (occurrence: US)
  Receive Date: 20211022
  Receipt Date: 20230221
  Transmission Date: 20230418
  Serious: Yes (Life-Threatening, Hospitalization, Disabling, Other)
  Sender: FDA-Public Use
  Company Number: US-TAKEDA-US201926862

PATIENT
  Age: 74 Year
  Sex: Female
  Weight: 91 kg

DRUGS (34)
  1. HUMAN C1-ESTERASE INHIBITOR [Suspect]
     Active Substance: HUMAN C1-ESTERASE INHIBITOR
     Indication: Hereditary angioedema
     Dosage: 1000 INTERNATIONAL UNIT
     Route: 065
     Dates: start: 20160928
  2. HUMAN C1-ESTERASE INHIBITOR [Suspect]
     Active Substance: HUMAN C1-ESTERASE INHIBITOR
     Indication: Hereditary angioedema
     Dosage: 1000 INTERNATIONAL UNIT
     Route: 065
     Dates: start: 20160928
  3. HUMAN C1-ESTERASE INHIBITOR [Suspect]
     Active Substance: HUMAN C1-ESTERASE INHIBITOR
     Indication: Hereditary angioedema
     Dosage: 1000 INTERNATIONAL UNIT
     Route: 065
     Dates: start: 20160928
  4. HUMAN C1-ESTERASE INHIBITOR [Suspect]
     Active Substance: HUMAN C1-ESTERASE INHIBITOR
     Indication: Prophylaxis
     Dosage: 1000 INTERNATIONAL UNIT, 1/WEEK
     Route: 042
     Dates: start: 20161003
  5. HUMAN C1-ESTERASE INHIBITOR [Suspect]
     Active Substance: HUMAN C1-ESTERASE INHIBITOR
     Indication: Prophylaxis
     Dosage: 1000 INTERNATIONAL UNIT, 1/WEEK
     Route: 042
     Dates: start: 20161003
  6. HUMAN C1-ESTERASE INHIBITOR [Suspect]
     Active Substance: HUMAN C1-ESTERASE INHIBITOR
     Indication: Prophylaxis
     Dosage: 1000 INTERNATIONAL UNIT, 1/WEEK
     Route: 042
     Dates: start: 20161003
  7. HUMAN C1-ESTERASE INHIBITOR [Suspect]
     Active Substance: HUMAN C1-ESTERASE INHIBITOR
     Dosage: 1000 INTERNATIONAL UNIT
     Route: 065
     Dates: start: 20161020
  8. HUMAN C1-ESTERASE INHIBITOR [Suspect]
     Active Substance: HUMAN C1-ESTERASE INHIBITOR
     Dosage: 1000 INTERNATIONAL UNIT
     Route: 065
     Dates: start: 20161020
  9. HUMAN C1-ESTERASE INHIBITOR [Suspect]
     Active Substance: HUMAN C1-ESTERASE INHIBITOR
     Dosage: 1000 INTERNATIONAL UNIT
     Route: 065
     Dates: start: 20161020
  10. FIRAZYR [Suspect]
     Active Substance: ICATIBANT ACETATE
     Indication: Immune system disorder
     Dosage: 30 MILLIGRAM
     Route: 058
     Dates: start: 20130923
  11. FIRAZYR [Suspect]
     Active Substance: ICATIBANT ACETATE
     Indication: Immune system disorder
     Dosage: 30 MILLIGRAM
     Route: 058
     Dates: start: 20130923
  12. FIRAZYR [Suspect]
     Active Substance: ICATIBANT ACETATE
     Dosage: UNK
     Route: 065
     Dates: start: 20131226
  13. FIRAZYR [Suspect]
     Active Substance: ICATIBANT ACETATE
     Dosage: UNK
     Route: 065
     Dates: start: 20131226
  14. FIRAZYR [Suspect]
     Active Substance: ICATIBANT ACETATE
     Dosage: 30 MILLIGRAM
     Route: 058
     Dates: start: 20140226
  15. FIRAZYR [Suspect]
     Active Substance: ICATIBANT ACETATE
     Dosage: 30 MILLIGRAM
     Route: 058
     Dates: start: 20140226
  16. FIRAZYR [Suspect]
     Active Substance: ICATIBANT ACETATE
     Dosage: UNK
     Route: 042
  17. FIRAZYR [Suspect]
     Active Substance: ICATIBANT ACETATE
     Dosage: UNK
     Route: 042
  18. SODIUM CHLORIDE [Concomitant]
     Active Substance: SODIUM CHLORIDE
     Route: 065
  19. STERILE WATER [Concomitant]
     Active Substance: WATER
     Route: 065
  20. EPINEPHRINE [Concomitant]
     Active Substance: EPINEPHRINE
     Route: 065
  21. VITAMIN B12 [Concomitant]
     Active Substance: CYANOCOBALAMIN
     Dosage: UNK
     Route: 065
  22. SYNTHROID [Concomitant]
     Active Substance: LEVOTHYROXINE SODIUM
     Dosage: UNK
     Route: 065
  23. APIDRA [Concomitant]
     Active Substance: INSULIN GLULISINE
     Route: 065
  24. ATENOLOL [Concomitant]
     Active Substance: ATENOLOL
     Route: 065
  25. LEVEMIR [Concomitant]
     Active Substance: INSULIN DETEMIR
     Route: 065
  26. ASPIRIN [Concomitant]
     Active Substance: ASPIRIN
     Route: 065
  27. POTASSIUM CHLORIDE [Concomitant]
     Active Substance: POTASSIUM CHLORIDE
     Route: 065
  28. PROMETHAZINE [Concomitant]
     Active Substance: PROMETHAZINE HYDROCHLORIDE
     Route: 065
  29. BENADRYL [Concomitant]
     Active Substance: DIPHENHYDRAMINE HYDROCHLORIDE
     Route: 065
  30. ACETAMINOPHEN\HYDROCODONE [Concomitant]
     Active Substance: ACETAMINOPHEN\HYDROCODONE
     Route: 065
  31. MAGNESIUM [Concomitant]
     Active Substance: MAGNESIUM
     Route: 065
  32. NITROGLYCERIN [Concomitant]
     Active Substance: NITROGLYCERIN
     Route: 065
  33. EPIPEN [Concomitant]
     Active Substance: EPINEPHRINE
     Route: 065
  34. PLAVIX [Concomitant]
     Active Substance: CLOPIDOGREL BISULFATE
     Route: 065

REACTIONS (7)
  - Hereditary angioedema [Recovered/Resolved]
  - COVID-19 pneumonia [Recovered/Resolved]
  - COVID-19 [Recovering/Resolving]
  - Irritable bowel syndrome [Recovered/Resolved]
  - Inability to afford medication [Unknown]
  - Product use issue [Unknown]
  - Inappropriate schedule of product administration [Unknown]

NARRATIVE: CASE EVENT DATE: 20210830
